FAERS Safety Report 9495742 (Version 1)
Quarter: 2013Q3

REPORT INFORMATION
  Report Type: Spontaneous
  Country: US (occurrence: US)
  Receive Date: 20130903
  Receipt Date: 20130903
  Transmission Date: 20140515
  Serious: No
  Sender: FDA-Public Use
  Company Number: US-B.I. PHARMACEUTICALS,INC./RIDGEFIELD-2013-BI-26280BP

PATIENT
  Sex: Female

DRUGS (7)
  1. TRADJENTA [Suspect]
     Indication: DIABETES MELLITUS
     Dosage: 5 MG
     Route: 048
  2. CYMBALTA [Concomitant]
     Route: 048
  3. ABILIFY [Concomitant]
     Route: 048
  4. AMLODIPINE [Concomitant]
     Route: 048
  5. SIMVASTATIN [Concomitant]
     Route: 048
  6. BUMETANIDE [Concomitant]
     Route: 048
  7. ZEMPLAR [Concomitant]
     Route: 048

REACTIONS (1)
  - Urinary incontinence [Not Recovered/Not Resolved]
